FAERS Safety Report 7720504-3 (Version None)
Quarter: 2011Q3

REPORT INFORMATION
  Report Type: 
  Country: None (occurrence: None)
  Receive Date: 20110831
  Receipt Date: 20110824
  Transmission Date: 20111222
  Serious: Yes (Hospitalization)
  Sender: FDA-Public Use
  Company Number: DE-ASTRAZENECA-2011SE37729

PATIENT
  Sex: Female

DRUGS (5)
  1. LEVOTHYROXINE SODIUM [Concomitant]
     Indication: HYPOTHYROIDISM
     Route: 048
  2. THOMAPYRIN [Concomitant]
     Indication: HEADACHE
     Dosage: AS REQUIRED
     Route: 048
  3. VANDETANIB [Suspect]
     Indication: THYROID CANCER
     Route: 048
     Dates: start: 20110606, end: 20110620
  4. NOVALGIN [Concomitant]
     Indication: HEADACHE
     Dosage: AS REQUIRED
     Route: 048
  5. LOPERAMIDE [Concomitant]
     Indication: DIARRHOEA
     Dosage: AS REQUIRED
     Route: 048
     Dates: start: 20110606

REACTIONS (1)
  - MIGRAINE WITH AURA [None]
